FAERS Safety Report 19947843 (Version 1)
Quarter: 2021Q4

REPORT INFORMATION
  Report Type: Spontaneous
  Country: US (occurrence: US)
  Receive Date: 20211013
  Receipt Date: 20211013
  Transmission Date: 20220303
  Serious: No
  Sender: FDA-Public Use
  Company Number: US-BAUSCH-BL-2021-033304

PATIENT
  Sex: Female

DRUGS (4)
  1. DILTIAZEM HYDROCHLORIDE [Suspect]
     Active Substance: DILTIAZEM HYDROCHLORIDE
     Indication: Heart rate irregular
     Route: 048
     Dates: end: 2021
  2. DILTIAZEM HYDROCHLORIDE [Suspect]
     Active Substance: DILTIAZEM HYDROCHLORIDE
     Indication: Product use in unapproved indication
     Route: 048
     Dates: start: 2021
  3. DILTIAZEM HYDROCHLORIDE [Suspect]
     Active Substance: DILTIAZEM HYDROCHLORIDE
     Indication: Heart rate irregular
     Route: 048
  4. DILTIAZEM HYDROCHLORIDE [Suspect]
     Active Substance: DILTIAZEM HYDROCHLORIDE
     Indication: Product use in unapproved indication

REACTIONS (4)
  - Heart rate irregular [Recovered/Resolved]
  - Symptom recurrence [Recovered/Resolved]
  - Product use in unapproved indication [Unknown]
  - Drug effective for unapproved indication [Unknown]

NARRATIVE: CASE EVENT DATE: 20210101
